FAERS Safety Report 15566622 (Version 2)
Quarter: 2024Q4

REPORT INFORMATION
  Report Type: Spontaneous
  Country: FI (occurrence: FI)
  Receive Date: 20181030
  Receipt Date: 20241018
  Transmission Date: 20250114
  Serious: Yes (Other)
  Sender: TEVA
  Company Number: None

PATIENT
  Age: 34 Year
  Sex: Female

DRUGS (19)
  1. SULFAMETHOXAZOLE\TRIMETHOPRIM [Suspect]
     Active Substance: SULFAMETHOXAZOLE\TRIMETHOPRIM
     Indication: Premedication
     Dosage: COTRIM FORTE RATIOPHARM, 3 DF, QW
     Route: 065
  2. LEMTRADA [Suspect]
     Active Substance: ALEMTUZUMAB
     Indication: Multiple sclerosis
     Dosage: STARTED BETWEEN NOV AND DEC-2014
     Route: 042
     Dates: start: 20141202, end: 20141204
  3. LEMTRADA [Suspect]
     Active Substance: ALEMTUZUMAB
     Indication: Multiple sclerosis
     Dosage: 12 MG,QD
     Route: 042
     Dates: start: 20131125
  4. EBASTINE [Concomitant]
     Active Substance: EBASTINE
     Indication: Premedication
     Dosage: 5 MG, QD
     Route: 065
     Dates: start: 20131125, end: 20131128
  5. CORTISONE ACETATE [Suspect]
     Active Substance: CORTISONE ACETATE
     Indication: Product used for unknown indication
     Dosage: UNK UNK,UNK
     Route: 065
  6. TAFLUPROST [Concomitant]
     Active Substance: TAFLUPROST
     Indication: Glaucoma
     Dosage: 1 DROP TWICE A DAY TO BOTH EYES
     Route: 047
  7. EBASTINE [Concomitant]
     Active Substance: EBASTINE
     Indication: Premedication
     Dosage: 5 MG, QD
     Route: 065
     Dates: start: 20131125, end: 20131128
  8. PRED FORTE [Concomitant]
     Active Substance: PREDNISOLONE ACETATE
     Indication: Product used for unknown indication
     Dosage: 6 DROPS A DAY TO BOTH EYES
     Route: 047
  9. PANTOPRAZOLE SODIUM [Concomitant]
     Active Substance: PANTOPRAZOLE SODIUM
     Indication: Premedication
     Route: 065
     Dates: start: 20131125, end: 20131128
  10. COSOPT [Concomitant]
     Active Substance: DORZOLAMIDE HYDROCHLORIDE\TIMOLOL MALEATE
     Indication: Glaucoma
     Dosage: EYE DROPS 1 DROP TO BOTH THE EYES TWICE DAILY
     Route: 047
     Dates: end: 20131128
  11. ODEMIN [Concomitant]
     Indication: Glaucoma
     Dosage: 1 TABLET
     Route: 048
  12. CLONAZEPAM [Concomitant]
     Active Substance: CLONAZEPAM
     Indication: Multiple sclerosis
     Dosage: 0.5 MG,QD
     Route: 048
  13. PARA TABS [Concomitant]
     Indication: Premedication
     Dosage: 500 MG X 4 TABLETS DAILY
     Route: 065
     Dates: start: 20131125, end: 20131128
  14. VARENICLINE TARTRATE [Concomitant]
     Active Substance: VARENICLINE TARTRATE
     Indication: Tobacco user
     Route: 065
     Dates: start: 201512
  15. ALPHAGAN P [Concomitant]
     Active Substance: BRIMONIDINE TARTRATE
     Indication: Product used for unknown indication
     Dosage: 1 DROP TWICE A DAY TO THE LEFT EYE
     Route: 047
  16. ACYCLOVIR [Concomitant]
     Active Substance: ACYCLOVIR
     Indication: Premedication
     Route: 065
     Dates: start: 201512
  17. ACYCLOVIR [Concomitant]
     Active Substance: ACYCLOVIR
     Indication: Premedication
     Dosage: 200 MG,BID
     Route: 065
     Dates: start: 20231125, end: 20231128
  18. SOLU-MEDROL [Concomitant]
     Active Substance: METHYLPREDNISOLONE SODIUM SUCCINATE
     Indication: Premedication
     Dosage: 1000 MG, UNK
     Route: 065
     Dates: start: 20131125, end: 20131127
  19. GILENYA [Concomitant]
     Active Substance: FINGOLIMOD HYDROCHLORIDE
     Indication: Product used for unknown indication
     Route: 065
     Dates: end: 2013

REACTIONS (29)
  - Multiple sclerosis [Unknown]
  - Blindness unilateral [Recovered/Resolved]
  - Platelet count decreased [Recovered/Resolved]
  - Rash [Recovering/Resolving]
  - Bradycardia [Unknown]
  - Insomnia [Unknown]
  - Muscular weakness [Not Recovered/Not Resolved]
  - Myalgia [Recovered/Resolved]
  - Endocrine ophthalmopathy [Not Recovered/Not Resolved]
  - Macular oedema [Unknown]
  - Graves^ disease [Unknown]
  - Diplopia [Unknown]
  - Uveitis [Unknown]
  - C-reactive protein increased [Not Recovered/Not Resolved]
  - C-reactive protein [Not Recovered/Not Resolved]
  - Hyperhidrosis [Unknown]
  - Oral herpes [Unknown]
  - Fatigue [Not Recovered/Not Resolved]
  - Muscle twitching [Unknown]
  - Urinary tract infection [Recovered/Resolved]
  - Restlessness [Unknown]
  - Fungal infection [Unknown]
  - Pneumonia pneumococcal [Recovering/Resolving]
  - Headache [Recovered/Resolved]
  - Feeling hot [Unknown]
  - Vitreous haemorrhage [Not Recovered/Not Resolved]
  - Neurological symptom [Unknown]
  - Pain [Unknown]
  - Eye disorder [Unknown]

NARRATIVE: CASE EVENT DATE: 20131125
